FAERS Safety Report 4315633-0 (Version None)
Quarter: 2004Q1

REPORT INFORMATION
  Report Type: 
  Country: None (occurrence: None)
  Receive Date: 20040311
  Receipt Date: 20040226
  Transmission Date: 20041129
  Serious: Yes (Other)
  Sender: FDA-Public Use
  Company Number: KR-GLAXOSMITHKLINE-B0325103A

PATIENT
  Age: 76 Year
  Sex: Female
  Weight: 50 kg

DRUGS (3)
  1. AVANDIA [Suspect]
     Indication: DIABETES MELLITUS
     Dosage: 4MG PER DAY
     Route: 048
     Dates: start: 20031028, end: 20040219
  2. GLIMEPIRIDE [Concomitant]
     Dosage: 2TAB PER DAY
     Dates: start: 20031027
  3. ACARBOSE [Concomitant]
     Dosage: 2TAB PER DAY
     Dates: end: 20031028

REACTIONS (5)
  - GENERALISED OEDEMA [None]
  - PALPITATIONS [None]
  - PERICARDIAL EFFUSION [None]
  - SUPRAVENTRICULAR EXTRASYSTOLES [None]
  - WEIGHT INCREASED [None]
